FAERS Safety Report 5527904-0 (Version None)
Quarter: 2007Q4

REPORT INFORMATION
  Report Type: 
  Country: None (occurrence: None)
  Receive Date: 20071128
  Receipt Date: 20071117
  Transmission Date: 20080405
  Serious: Yes (Other)
  Sender: FDA-Public Use
  Company Number: US-JNJFOC-20071101040

PATIENT
  Sex: Male
  Weight: 36.56 kg

DRUGS (6)
  1. REMICADE [Suspect]
     Route: 042
  2. REMICADE [Suspect]
     Indication: JUVENILE ARTHRITIS
     Route: 042
  3. REMICADE [Suspect]
     Indication: CROHN'S DISEASE
     Route: 042
  4. TYLENOL [Concomitant]
     Indication: PREMEDICATION
  5. BENADRYL [Concomitant]
     Indication: PREMEDICATION
  6. PREDNISONE TAB [Concomitant]

REACTIONS (6)
  - HYPERSENSITIVITY [None]
  - INFUSION RELATED REACTION [None]
  - RASH [None]
  - SWELLING FACE [None]
  - THROAT TIGHTNESS [None]
  - URTICARIA [None]
